FAERS Safety Report 9021410 (Version 1)
Quarter: 2013Q1

REPORT INFORMATION
  Report Type: Spontaneous
  Country: US (occurrence: US)
  Receive Date: 20130119
  Receipt Date: 20130119
  Transmission Date: 20140127
  Serious: No
  Sender: FDA-Public Use
  Company Number: US-ALLERGAN-1202431US

PATIENT
  Sex: Female

DRUGS (1)
  1. BOTOX COSMETIC [Suspect]
     Indication: FACIAL PARESIS
     Dosage: 4 UNITS TO LEFT AND 4 UNITS IN RIGHT DEPRESSOR ORIS
     Route: 030
     Dates: start: 20120209, end: 20120209

REACTIONS (2)
  - Facial paresis [Unknown]
  - Facial paresis [Unknown]
